FAERS Safety Report 9628830 (Version 2)
Quarter: 2013Q4

REPORT INFORMATION
  Report Type: Spontaneous
  Country: US (occurrence: US)
  Receive Date: 20131017
  Receipt Date: 20131017
  Transmission Date: 20140711
  Serious: No
  Sender: FDA-Public Use
  Company Number: US-GLAXOSMITHKLINE-A0994061A

PATIENT
  Sex: 0

DRUGS (1)
  1. CEFTIN [Suspect]
     Indication: EAR INFECTION
     Route: 048

REACTIONS (2)
  - Drug administration error [Unknown]
  - Product quality issue [Unknown]
